FAERS Safety Report 17196399 (Version 9)
Quarter: 2021Q3

REPORT INFORMATION
  Report Type: Report from Study
  Country: CO (occurrence: CO)
  Receive Date: 20191224
  Receipt Date: 20210824
  Transmission Date: 20211014
  Serious: Yes (Hospitalization, Other)
  Sender: FDA-Public Use
  Company Number: CO-ASTELLAS-2019US027008

PATIENT
  Age: 35 Year
  Sex: Female
  Weight: 48 kg

DRUGS (29)
  1. TACROLIMUS. [Suspect]
     Active Substance: TACROLIMUS
     Dosage: 14 MG, ONCE DAILY (2 CAPSULE OF 5 MG AND 4 CAPSULE OF 1 MG)
     Route: 048
     Dates: end: 20201021
  2. TACROLIMUS. [Suspect]
     Active Substance: TACROLIMUS
     Route: 048
     Dates: start: 20201025
  3. CLONIDINE. [Concomitant]
     Active Substance: CLONIDINE
     Indication: PRODUCT USED FOR UNKNOWN INDICATION
     Route: 065
  4. MYCOPHENOLATE [Concomitant]
     Active Substance: MYCOPHENOLIC ACID
     Indication: RENAL TRANSPLANT
     Route: 048
     Dates: start: 20190525
  5. MYCOPHENOLATE [Concomitant]
     Active Substance: MYCOPHENOLIC ACID
     Dosage: 180 MG, EVERY 12 HOURS (1IN MORNING AND 1 AT NIGHT)
     Route: 048
  6. PREDNISOLONE. [Concomitant]
     Active Substance: PREDNISOLONE
     Indication: PRODUCT USED FOR UNKNOWN INDICATION
     Route: 065
     Dates: start: 20190525
  7. TACROLIMUS. [Suspect]
     Active Substance: TACROLIMUS
     Dosage: 19 MG, ONCE DAILY 3 CAPSULES OF 5 MG AND 4 CAPSULES OF 1 MG)
     Route: 048
     Dates: start: 20191213, end: 20200329
  8. PRAZOSIN. [Concomitant]
     Active Substance: PRAZOSIN
     Indication: PRODUCT USED FOR UNKNOWN INDICATION
     Route: 065
  9. MYCOPHENOLATE [Concomitant]
     Active Substance: MYCOPHENOLIC ACID
     Indication: PROPHYLAXIS
     Dosage: 720 MG (360 MGCAPSULES), ONCE DAILY
     Route: 048
     Dates: start: 20190525
  10. TACROLIMUS. [Suspect]
     Active Substance: TACROLIMUS
     Route: 048
  11. WARFARIN [Suspect]
     Active Substance: WARFARIN
     Indication: PRODUCT USED FOR UNKNOWN INDICATION
     Route: 065
  12. CARVEDILOL. [Concomitant]
     Active Substance: CARVEDILOL
     Indication: BLOOD PRESSURE INCREASED
     Route: 048
  13. TACROLIMUS. [Suspect]
     Active Substance: TACROLIMUS
     Route: 048
  14. WARFARIN [Suspect]
     Active Substance: WARFARIN
     Route: 065
     Dates: start: 20190811
  15. PREDNISOLONA [Concomitant]
     Active Substance: PREDNISOLONE
     Route: 048
  16. MYCOPHENOLATE [Concomitant]
     Active Substance: MYCOPHENOLIC ACID
     Route: 048
  17. LOSARTAN. [Concomitant]
     Active Substance: LOSARTAN
     Indication: BLOOD PRESSURE ABNORMAL
     Dosage: 100 MG IN THE MORNING AND 50 MG IN THE NIGHT
     Route: 048
     Dates: start: 20191203, end: 20191203
  18. CARVEDILOL. [Concomitant]
     Active Substance: CARVEDILOL
     Dosage: 6.5 MG, EVERY 12 HOURS (1 IN MORNING AND 1 AT NIGHT)
     Route: 048
  19. TACROLIMUS. [Suspect]
     Active Substance: TACROLIMUS
     Indication: RENAL TRANSPLANT
     Dosage: 5 MG, ONCE DAILY (1 CAPSULE OF 5 MG)
     Route: 048
     Dates: start: 20190525, end: 20190603
  20. TACROLIMUS. [Suspect]
     Active Substance: TACROLIMUS
     Dosage: 10 MG, ONCE DAILY (2 CAPSULES OF 5MG), ONCE DAILY.
     Route: 048
     Dates: start: 20200330
  21. LOSARTAN. [Concomitant]
     Active Substance: LOSARTAN
     Dosage: 50 MG, EVERY 12 HOURS (1 AT MORNING 1 AT NIGHT)
     Route: 048
  22. TACROLIMUS. [Suspect]
     Active Substance: TACROLIMUS
     Dosage: 25 MG, ONCE DAILY (5 CAPSULES OF 5 MG AND 5 CAPSULES OF 1 MG)
     Route: 048
     Dates: start: 20190816, end: 20190926
  23. ESOMEPRAZOLE. [Concomitant]
     Active Substance: ESOMEPRAZOLE MAGNESIUM
     Indication: GASTRITIS
     Route: 048
  24. PREDNISOLONA [Concomitant]
     Active Substance: PREDNISOLONE
     Indication: RENAL TRANSPLANT
     Route: 048
     Dates: start: 20190525
  25. FLUCONAZOL [Concomitant]
     Active Substance: FLUCONAZOLE
     Indication: LIVER DISORDER
     Route: 048
  26. TACROLIMUS. [Suspect]
     Active Substance: TACROLIMUS
     Dosage: 24 MG, ONCE DAILY (4 CAPSULES OF 5 MG AND 4 CAPSULES OF 1 MG)
     Route: 048
     Dates: start: 20190604, end: 20190815
  27. TACROLIMUS. [Suspect]
     Active Substance: TACROLIMUS
     Dosage: 22 MG, ONCE DAILY (4 CAPSULES OF 5 MG AND 2 CAPSULES OF 1 MG)
     Route: 048
     Dates: start: 20190927, end: 20191212
  28. VERAPAMIL [Concomitant]
     Active Substance: VERAPAMIL HYDROCHLORIDE
     Indication: PRODUCT USED FOR UNKNOWN INDICATION
     Route: 065
  29. FUROSEMIDE. [Concomitant]
     Active Substance: FUROSEMIDE
     Indication: MICTURITION DISORDER
     Route: 048

REACTIONS (11)
  - Drug level abnormal [Unknown]
  - Weight decreased [Recovering/Resolving]
  - Immunosuppressant drug level increased [Not Recovered/Not Resolved]
  - Immunosuppressant drug level decreased [Not Recovered/Not Resolved]
  - Blood creatinine abnormal [Recovering/Resolving]
  - Blood electrolytes decreased [Recovered/Resolved]
  - Kidney transplant rejection [Recovered/Resolved]
  - White blood cell count decreased [Recovering/Resolving]
  - Weight decreased [Not Recovered/Not Resolved]
  - Blood creatinine abnormal [Recovering/Resolving]
  - Haemorrhage [Recovered/Resolved]

NARRATIVE: CASE EVENT DATE: 20190604
